FAERS Safety Report 12879998 (Version 1)
Quarter: 2016Q4

REPORT INFORMATION
  Report Type: Spontaneous
  Country: US (occurrence: US)
  Receive Date: 20161021
  Receipt Date: 20161021
  Transmission Date: 20170207
  Serious: No
  Sender: FDA-Public Use
  Company Number: None

PATIENT
  Age: 71 Year
  Sex: Male

DRUGS (1)
  1. IAMTINIB 400MG SUN PHARMACEUTICALS [Suspect]
     Active Substance: IMATINIB
     Indication: CHRONIC MYELOID LEUKAEMIA
     Route: 048
     Dates: start: 20160615

REACTIONS (5)
  - Rash generalised [None]
  - Oedema peripheral [None]
  - Rash erythematous [None]
  - Blood urine present [None]
  - Activities of daily living impaired [None]

NARRATIVE: CASE EVENT DATE: 20161011
